FAERS Safety Report 7430008-3 (Version None)
Quarter: 2011Q2

REPORT INFORMATION
  Report Type: 
  Country: None (occurrence: None)
  Receive Date: 20110421
  Receipt Date: 20110414
  Transmission Date: 20111010
  Serious: Yes (Other)
  Sender: FDA-Public Use
  Company Number: US-US-EMD SERONO, INC.-7049907

PATIENT
  Sex: Female
  Weight: 54 kg

DRUGS (5)
  1. REBIF [Suspect]
     Indication: MULTIPLE SCLEROSIS
     Route: 058
     Dates: start: 20050103
  2. ACETAMINOPHEN [Concomitant]
     Indication: PREMEDICATION
  3. FOLIC ACID [Concomitant]
  4. VITAMIN D [Concomitant]
     Indication: VITAMIN D DECREASED
  5. ORTHO TRI-CYCLEN LO [Concomitant]
     Indication: CONTRACEPTION
     Dates: start: 19970101

REACTIONS (5)
  - LUNG NEOPLASM [None]
  - COSTOCHONDRITIS [None]
  - NASOPHARYNGITIS [None]
  - CHOLELITHIASIS [None]
  - INJECTION SITE PRURITUS [None]
